FAERS Safety Report 11516510 (Version 2)
Quarter: 2015Q4

REPORT INFORMATION
  Report Type: Spontaneous
  Country: US (occurrence: US)
  Receive Date: 20150917
  Receipt Date: 20151009
  Transmission Date: 20160304
  Serious: No
  Sender: FDA-Public Use
  Company Number: US-PFIZER INC-2015304996

PATIENT
  Age: 81 Year
  Sex: Female

DRUGS (1)
  1. HYDROCORTISONE. [Suspect]
     Active Substance: HYDROCORTISONE

REACTIONS (6)
  - Vertigo [Unknown]
  - Feeling abnormal [Unknown]
  - Thinking abnormal [Unknown]
  - Increased appetite [Unknown]
  - Dizziness [Unknown]
  - Weight increased [Unknown]
